FAERS Safety Report 9894282 (Version 1)
Quarter: 2014Q1

REPORT INFORMATION
  Report Type: Spontaneous
  Country: FR (occurrence: FR)
  Receive Date: 20140213
  Receipt Date: 20140213
  Transmission Date: 20141002
  Serious: Yes (Hospitalization, Other)
  Sender: FDA-Public Use
  Company Number: FR-GLAXOSMITHKLINE-B0965934A

PATIENT
  Age: 57 Year
  Sex: Male

DRUGS (18)
  1. ZELITREX [Suspect]
     Indication: PRODUCT USED FOR UNKNOWN INDICATION
     Dosage: 1000MG THREE TIMES PER DAY
     Route: 048
     Dates: start: 20131203, end: 20140112
  2. CEFEPIME [Suspect]
     Indication: PRODUCT USED FOR UNKNOWN INDICATION
     Dosage: 2G THREE TIMES PER DAY
     Route: 042
     Dates: start: 20131224, end: 20131229
  3. VANCOMYCINE [Suspect]
     Indication: PRODUCT USED FOR UNKNOWN INDICATION
     Dosage: 2.5G PER DAY
     Route: 042
     Dates: start: 20131224, end: 20140102
  4. HEPARINE CHOAY [Suspect]
     Indication: PRODUCT USED FOR UNKNOWN INDICATION
     Dosage: 7000IU PER DAY
     Route: 042
     Dates: start: 20131224, end: 20140108
  5. AMIKACIN [Suspect]
     Indication: PRODUCT USED FOR UNKNOWN INDICATION
     Dosage: 1750MG PER DAY
     Route: 065
     Dates: start: 20131226, end: 20131230
  6. CUBICIN [Suspect]
     Indication: PRODUCT USED FOR UNKNOWN INDICATION
     Dosage: 420MG PER DAY
     Route: 042
     Dates: start: 20140103, end: 20140107
  7. TAZOCILLINE [Suspect]
     Indication: PRODUCT USED FOR UNKNOWN INDICATION
     Dosage: 4G FOUR TIMES PER DAY
     Route: 042
     Dates: start: 20131230, end: 20140103
  8. NOXAFIL [Suspect]
     Indication: PRODUCT USED FOR UNKNOWN INDICATION
     Dosage: 300MG THREE TIMES PER DAY
     Route: 048
     Dates: start: 20131205, end: 20140109
  9. INEXIUM [Suspect]
     Indication: PRODUCT USED FOR UNKNOWN INDICATION
     Dosage: 20MG PER DAY
     Route: 048
     Dates: start: 20131205, end: 20140111
  10. CICLOSPORIN [Suspect]
     Indication: PRODUCT USED FOR UNKNOWN INDICATION
     Dosage: 220MG PER DAY
     Route: 042
     Dates: start: 20131214, end: 20140105
  11. AMOXYCILLIN + CLAVULANIC ACID [Concomitant]
     Indication: PYREXIA
     Dates: start: 201311, end: 20131118
  12. FLAGYL [Concomitant]
     Indication: DIVERTICULITIS
  13. OROKEN [Concomitant]
     Indication: PYREXIA
  14. SOLUMEDROL [Concomitant]
     Dates: start: 20131214, end: 20140102
  15. ATGAM [Concomitant]
     Dates: start: 20131214, end: 20131217
  16. MOTILIUM [Concomitant]
     Dates: start: 20131218, end: 20131224
  17. TIENAM [Concomitant]
     Dates: start: 201312, end: 20131220
  18. OFLOCET [Concomitant]
     Dates: start: 201312, end: 20131220

REACTIONS (3)
  - Skin mass [Unknown]
  - Myalgia [Unknown]
  - Generalised oedema [Unknown]
